FAERS Safety Report 9516176 (Version 1)
Quarter: 2013Q1

REPORT INFORMATION
  Report Type: Spontaneous
  Country: US (occurrence: None)
  Receive Date: 20130305
  Receipt Date: 20130305
  Transmission Date: 20140127
  Serious: Yes (Other)
  Sender: FDA-Public Use
  Company Number: 163-21880-12113268

PATIENT
  Age: 50 Year
  Sex: Female

DRUGS (13)
  1. REVLIMID [Suspect]
     Indication: MYELODYSPLASTIC SYNDROME
     Dosage: 10 MG, 1 IN 1 D, PO
     Route: 048
     Dates: start: 201207, end: 201208
  2. ALPRAZOLAM (ALPRAZOLAM) [Concomitant]
  3. ASPIRIN (ACETYLSALICYLIC ACID) [Concomitant]
  4. CHLORAL HYDRATE (CHLORAL HYDRATE) [Concomitant]
  5. FLUOXETINE (FLUOXETINE) [Concomitant]
  6. FISH OIL (FISH OIL) [Concomitant]
  7. LEVOTHYROXINE (LEVOTHYROXINE) [Concomitant]
  8. METHADONE (METHADONE) [Concomitant]
  9. METHOCARBAMOL (METHOCARBAMOL) [Concomitant]
  10. VITAMINS [Concomitant]
  11. VITAMIN B12 (CYANOCOBALAMIN) [Concomitant]
  12. VITAMIN D (ERGOCALCIFEROL) [Concomitant]
  13. VITAMIN E (TOCOPHEROL) [Concomitant]

REACTIONS (1)
  - White blood cell count decreased [None]
